FAERS Safety Report 12829969 (Version 1)
Quarter: 2016Q4

REPORT INFORMATION
  Report Type: Spontaneous
  Country: US (occurrence: US)
  Receive Date: 20161007
  Receipt Date: 20161007
  Transmission Date: 20170207
  Serious: No
  Sender: FDA-Public Use
  Company Number: US-SA-2016SA135732

PATIENT
  Age: 68 Year
  Sex: Female

DRUGS (15)
  1. HYDROCHLOROT [Concomitant]
     Active Substance: HYDROCHLOROTHIAZIDE
  2. AVONEX [Concomitant]
     Active Substance: INTERFERON BETA-1A
  3. LOVASTATIN. [Concomitant]
     Active Substance: LOVASTATIN
  4. METOPROLOL. [Concomitant]
     Active Substance: METOPROLOL
  5. CITALOPRAM [Concomitant]
     Active Substance: CITALOPRAM HYDROBROMIDE
  6. VENTOLIN [Concomitant]
     Active Substance: ALBUTEROL SULFATE
  7. AZITHROMYCIN ANHYDROUS. [Concomitant]
     Active Substance: AZITHROMYCIN ANHYDROUS
  8. CHANTIX [Concomitant]
     Active Substance: VARENICLINE TARTRATE
  9. DILTIAZEM. [Concomitant]
     Active Substance: DILTIAZEM
  10. MODAFINIL. [Concomitant]
     Active Substance: MODAFINIL
  11. METHYLPRED [Concomitant]
     Active Substance: METHYLPREDNISOLONE
  12. AUBAGIO [Suspect]
     Active Substance: TERIFLUNOMIDE
     Indication: MULTIPLE SCLEROSIS
     Route: 048
     Dates: start: 20160114
  13. CLONAZEPAM. [Concomitant]
     Active Substance: CLONAZEPAM
  14. POTASSIUM CHLORIDE. [Concomitant]
     Active Substance: POTASSIUM CHLORIDE
     Dosage: 20 MEQ
  15. TIZANIDINE. [Concomitant]
     Active Substance: TIZANIDINE

REACTIONS (1)
  - Alopecia [Not Recovered/Not Resolved]
